FAERS Safety Report 5138919-9 (Version None)
Quarter: 2006Q4

REPORT INFORMATION
  Report Type: 
  Country: None (occurrence: None)
  Receive Date: 20061030
  Receipt Date: 20060516
  Transmission Date: 20070319
  Serious: No
  Sender: FDA-Public Use
  Company Number: US-GLAXOSMITHKLINE-A0605832A

PATIENT
  Age: 48 Year
  Sex: Female

DRUGS (9)
  1. ADVAIR HFA [Suspect]
     Indication: ASTHMA
     Dosage: 250MCG TWICE PER DAY
     Route: 055
     Dates: start: 20030101
  2. ALBUTEROL [Concomitant]
  3. DILANTIN [Concomitant]
  4. CLARITIN [Concomitant]
  5. MOTRIN [Concomitant]
  6. VICODIN [Concomitant]
  7. NASONEX [Concomitant]
  8. ACIPHEX [Concomitant]
  9. ANTIBIOTICS (UNSPECIFIED) [Concomitant]

REACTIONS (1)
  - EPISTAXIS [None]
